FAERS Safety Report 22190126 (Version 1)
Quarter: 2023Q2

REPORT INFORMATION
  Report Type: Spontaneous
  Country: US (occurrence: US)
  Receive Date: 20230410
  Receipt Date: 20230410
  Transmission Date: 20230722
  Serious: No
  Sender: FDA-Public Use
  Company Number: US-APOTEX-2022AP008353

PATIENT
  Sex: Female

DRUGS (1)
  1. DESMOPRESSIN ACETATE [Suspect]
     Active Substance: DESMOPRESSIN ACETATE
     Indication: Diabetes insipidus
     Dosage: THREE QUARTERS OF 0.1 TABLET EVERY NIGHT AT BEDTIME
     Route: 065
     Dates: start: 20220416, end: 202205

REACTIONS (2)
  - Product substitution issue [Unknown]
  - Drug ineffective [Unknown]
